FAERS Safety Report 6830631-0 (Version None)
Quarter: 2010Q3

REPORT INFORMATION
  Report Type: 
  Country: None (occurrence: None)
  Receive Date: 20100709
  Receipt Date: 20100709
  Transmission Date: 20110219
  Serious: Yes (Other)
  Sender: FDA-Public Use
  Company Number: None

PATIENT
  Age: 69 Year
  Sex: Male
  Weight: 135.6255 kg

DRUGS (23)
  1. NATEGLINIDE [Suspect]
     Indication: DIABETES MELLITUS
     Dosage: 120 MGS TID ORAL
     Route: 048
     Dates: start: 20100501
  2. NATEGLINIDE [Suspect]
     Indication: DIABETES MELLITUS
     Dosage: 120 MGS TID ORAL
     Route: 048
     Dates: start: 20100601
  3. METFORMIN HCL [Concomitant]
  4. LANTUS [Concomitant]
  5. METFORMIN HCL (METFORMIN HCL) [Concomitant]
  6. CLONIDINE HCL (CLONIDINE HCL) [Concomitant]
  7. LANTUS [Concomitant]
  8. FISH OIL CAPS (OMEGA-3 FATTY ACIDS CAPS) [Concomitant]
  9. ALPRAZOLAM [Concomitant]
  10. ONE TOUCH ULTRA TEST [Concomitant]
  11. ASPIRIN EC LO-DOSE (ASPIRIN) [Concomitant]
  12. HYDROCHLOROTHIAZIDE [Concomitant]
  13. AMLODIPINE BESYLATE [Concomitant]
  14. TRIAMCINOLONE ACETONIDE CREA (TRIAMCINOLONE ACETONIDE) [Concomitant]
  15. LOTRISONE CREA (CLOTRIMAZOLE-BETAMETHASONE CREA) [Concomitant]
  16. LOVAZA 1 GM CAPS (OMEGA-3-ACID ETHYL ESTERS) [Concomitant]
  17. GNP PAIN RELIEVER EX ST (ACETAMINOPHEN) [Concomitant]
  18. KLOR-CON (POTASSIUM CHLORIDE CRYS CR) [Concomitant]
  19. IBUPROFEN [Concomitant]
  20. SOMA [Concomitant]
  21. HYDROCODONE-ACETAMINOPHEN (HYDROCODONE-ACETAMINOPHEN) [Concomitant]
  22. LASIX [Concomitant]
  23. ONE TOUCH LANCETS [Concomitant]

REACTIONS (3)
  - ABDOMINAL PAIN UPPER [None]
  - DIARRHOEA [None]
  - PRODUCT SUBSTITUTION ISSUE [None]
